FAERS Safety Report 12267149 (Version 1)
Quarter: 2016Q2

REPORT INFORMATION
  Report Type: Spontaneous
  Country: US (occurrence: None)
  Receive Date: 20160413
  Receipt Date: 20160413
  Transmission Date: 20160815
  Serious: No
  Sender: FDA-Public Use
  Company Number: None

PATIENT
  Age: 33 Year
  Sex: Male

DRUGS (2)
  1. HALOPERIDOL, 5MG/2.5ML [Suspect]
     Active Substance: HALOPERIDOL LACTATE
     Indication: PSYCHOTIC DISORDER
     Route: 048
     Dates: start: 20151212, end: 20151212
  2. ZYPREXA ZYDIS [Concomitant]
     Active Substance: OLANZAPINE

REACTIONS (6)
  - Breath sounds abnormal [None]
  - Chest discomfort [None]
  - Salivary hypersecretion [None]
  - Dyspnoea [None]
  - Swollen tongue [None]
  - Drooling [None]

NARRATIVE: CASE EVENT DATE: 20151213
